FAERS Safety Report 14998262 (Version 2)
Quarter: 2019Q1

REPORT INFORMATION
  Report Type: Spontaneous
  Country: KW (occurrence: KW)
  Receive Date: 20180611
  Receipt Date: 20190131
  Transmission Date: 20190417
  Serious: Yes (Other)
  Sender: FDA-Public Use
  Company Number: KW-BAYER-2018-088347

PATIENT
  Sex: Male

DRUGS (1)
  1. NEXAVAR [Suspect]
     Active Substance: SORAFENIB
     Indication: HEPATOCELLULAR CARCINOMA
     Dosage: 800 MG, DAILY

REACTIONS (4)
  - Skin ulcer [None]
  - Loss of personal independence in daily activities [None]
  - Dermatitis [None]
  - Pain of skin [None]
